FAERS Safety Report 12373290 (Version 4)
Quarter: 2016Q2

REPORT INFORMATION
  Report Type: Report from Study
  Country: US (occurrence: US)
  Receive Date: 20160516
  Receipt Date: 20160518
  Transmission Date: 20160815
  Serious: Yes (Hospitalization)
  Sender: FDA-Public Use
  Company Number: US-JNJFOC-20160508343

PATIENT
  Age: 13 Year
  Sex: Female
  Weight: 39.1 kg

DRUGS (4)
  1. 6-MP [Concomitant]
     Active Substance: MERCAPTOPURINE
     Dosage: 50MG TO 25 MG (ALTERNATING DAY)
     Route: 065
     Dates: start: 20141001, end: 20151113
  2. PREDNISONE. [Concomitant]
     Active Substance: PREDNISONE
     Route: 065
  3. REMICADE [Suspect]
     Active Substance: INFLIXIMAB
     Indication: INFLAMMATORY BOWEL DISEASE
     Route: 042
     Dates: start: 20140307
  4. HUMIRA [Concomitant]
     Active Substance: ADALIMUMAB
     Indication: AUTOIMMUNE HEPATITIS
     Route: 065

REACTIONS (1)
  - Colitis ulcerative [Recovered/Resolved with Sequelae]

NARRATIVE: CASE EVENT DATE: 20151124
